FAERS Safety Report 16830279 (Version 1)
Quarter: 2019Q3

REPORT INFORMATION
  Report Type: Spontaneous
  Country: US (occurrence: US)
  Receive Date: 20190920
  Receipt Date: 20190920
  Transmission Date: 20191005
  Serious: No
  Sender: FDA-Public Use
  Company Number: US-ORCHID HEALTHCARE-2074700

PATIENT
  Age: 60 Year
  Sex: Female
  Weight: 72.73 kg

DRUGS (7)
  1. CORTISONE [Suspect]
     Active Substance: CORTISONE
     Route: 065
  2. HYDROMORPHONE [Concomitant]
     Active Substance: HYDROMORPHONE
     Route: 065
     Dates: start: 20170928, end: 20171001
  3. SUMATRIPTAN. [Suspect]
     Active Substance: SUMATRIPTAN
     Indication: MIGRAINE
     Route: 048
  4. CELECOXIB. [Suspect]
     Active Substance: CELECOXIB
     Route: 065
  5. TRIAMTERENE HCTZ [Suspect]
     Active Substance: HYDROCHLOROTHIAZIDE\TRIAMTERENE
     Route: 065
  6. XARELTO [Concomitant]
     Active Substance: RIVAROXABAN
     Route: 048
     Dates: start: 20170928
  7. FAMOTIDINE. [Concomitant]
     Active Substance: FAMOTIDINE
     Route: 048
     Dates: start: 20170928

REACTIONS (6)
  - Feeling abnormal [Unknown]
  - Skin exfoliation [Recovered/Resolved]
  - Drug interaction [Unknown]
  - Feeling hot [Recovering/Resolving]
  - Erythema [Recovering/Resolving]
  - Chest discomfort [Unknown]

NARRATIVE: CASE EVENT DATE: 2017
